FAERS Safety Report 20282099 (Version 1)
Quarter: 2022Q1

REPORT INFORMATION
  Report Type: Spontaneous
  Country: IE (occurrence: IE)
  Receive Date: 20220103
  Receipt Date: 20220103
  Transmission Date: 20220423
  Serious: Yes (Hospitalization)
  Sender: FDA-Public Use
  Company Number: IE-MYLANLABS-2022M1000401

PATIENT
  Age: 62 Year
  Sex: Female

DRUGS (6)
  1. EPINEPHRINE [Suspect]
     Active Substance: EPINEPHRINE
     Indication: Oropharyngeal oedema
     Dosage: 0.5MG OF 1:1000 AT 14:10 AND 15:53 PM
     Route: 058
     Dates: start: 20201026
  2. ESOMEPRAZOLE [Concomitant]
     Active Substance: ESOMEPRAZOLE
     Indication: Gastrooesophageal reflux disease
     Dosage: 40 MILLIGRAM, QD
     Route: 065
  3. ACLIDINIUM BROMIDE [Concomitant]
     Active Substance: ACLIDINIUM BROMIDE
     Indication: Chronic obstructive pulmonary disease
     Dosage: 322 MICROGRAM, QD
     Route: 065
  4. CHLORPHENIRAMINE MALEATE [Concomitant]
     Active Substance: CHLORPHENIRAMINE MALEATE
     Indication: Oropharyngeal oedema
     Dosage: 10 MILLIGRAM
     Route: 042
     Dates: start: 20201026
  5. HYDROCORTISONE [Concomitant]
     Active Substance: HYDROCORTISONE
     Indication: Oropharyngeal oedema
     Dosage: 200 MILLIGRAM
     Route: 042
     Dates: start: 20201026
  6. INDAPAMIDE\PERINDOPRIL [Concomitant]
     Active Substance: INDAPAMIDE\PERINDOPRIL
     Indication: Essential hypertension
     Dosage: UNK, QD
     Route: 065

REACTIONS (4)
  - Stress cardiomyopathy [Recovered/Resolved]
  - Pleural effusion [Recovered/Resolved]
  - Hypervolaemia [Recovered/Resolved]
  - Cardiac septal hypertrophy [Recovered/Resolved]

NARRATIVE: CASE EVENT DATE: 20201031
